FAERS Safety Report 7034627-8 (Version None)
Quarter: 2010Q4

REPORT INFORMATION
  Report Type: 
  Country: None (occurrence: None)
  Receive Date: 20101008
  Receipt Date: 20101006
  Transmission Date: 20110411
  Serious: Yes (Death)
  Sender: FDA-Public Use
  Company Number: JP-SANOFI-AVENTIS-2010SA055822

PATIENT
  Age: 17 Year
  Sex: Male
  Weight: 64.6 kg

DRUGS (10)
  1. RASBURICASE [Suspect]
     Indication: HYPERURICAEMIA
     Route: 042
     Dates: start: 20100914, end: 20100915
  2. MUSCULAX [Concomitant]
     Indication: SEDATION
     Route: 042
     Dates: start: 20100914, end: 20100916
  3. MIDAZOLAM HCL [Concomitant]
     Indication: SEDATION
     Route: 042
     Dates: start: 20100914, end: 20100916
  4. MEROPEN [Concomitant]
     Indication: SEPSIS
     Route: 042
     Dates: start: 20100914, end: 20100916
  5. NAFAMOSTAT [Concomitant]
     Indication: DISSEMINATED INTRAVASCULAR COAGULATION
     Route: 042
     Dates: start: 20100914, end: 20100916
  6. FAMOTIDINE [Concomitant]
     Indication: PEPTIC ULCER
     Route: 042
     Dates: start: 20100914, end: 20100916
  7. ANTHROBIN P [Concomitant]
     Indication: DISSEMINATED INTRAVASCULAR COAGULATION
     Dosage: DOSE:500 UNIT(S)
     Route: 042
     Dates: start: 20100915, end: 20100916
  8. LASIX [Concomitant]
     Indication: RENAL FAILURE
     Route: 042
     Dates: start: 20100915, end: 20100916
  9. PLATELETS [Concomitant]
     Dates: start: 20100913
  10. DOMININ [Concomitant]
     Indication: BLOOD PRESSURE DECREASED
     Route: 042
     Dates: start: 20100916, end: 20100916

REACTIONS (1)
  - CEREBRAL HAEMORRHAGE [None]
